FAERS Safety Report 6649674-5 (Version None)
Quarter: 2010Q1

REPORT INFORMATION
  Report Type: 
  Country: None (occurrence: None)
  Receive Date: 20100324
  Receipt Date: 20100324
  Transmission Date: 20100710
  Serious: Yes (Life-Threatening)
  Sender: FDA-Public Use
  Company Number: None

PATIENT
  Age: 72 Year
  Sex: Male
  Weight: 81.8 kg

DRUGS (2)
  1. RANOLAZINE [Suspect]
     Indication: ARTERIAL OCCLUSIVE DISEASE
     Dosage: 250 MG. 2 TIMES /DAY
     Dates: start: 20091226
  2. RANOLAZINE [Suspect]
     Indication: ARTERIAL OCCLUSIVE DISEASE
     Dosage: 250 MG. 2 TIMES /DAY
     Dates: start: 20100310

REACTIONS (5)
  - BACTERIAL INFECTION [None]
  - GINGIVAL SWELLING [None]
  - JAW DISORDER [None]
  - SWELLING [None]
  - UNEVALUABLE EVENT [None]
